FAERS Safety Report 5640303-6 (Version None)
Quarter: 2008Q1

REPORT INFORMATION
  Report Type: 
  Country: None (occurrence: None)
  Receive Date: 20080227
  Receipt Date: 20080220
  Transmission Date: 20080703
  Serious: No
  Sender: FDA-Public Use
  Company Number: US-BAXTER-2008BH001391

PATIENT
  Age: 3 Day
  Sex: Male
  Weight: 3 kg

DRUGS (2)
  1. HEPARIN SODIUM [Suspect]
     Indication: PROPHYLAXIS
     Route: 040
     Dates: start: 20080215, end: 20080215
  2. HEPARIN SODIUM [Suspect]
     Route: 040
     Dates: start: 20080215, end: 20080215

REACTIONS (2)
  - OXYGEN SATURATION DECREASED [None]
  - PULMONARY HAEMORRHAGE [None]
